FAERS Safety Report 23559271 (Version 2)
Quarter: 2024Q1

REPORT INFORMATION
  Report Type: Report from Study
  Country: US (occurrence: US)
  Receive Date: 20240223
  Receipt Date: 20240322
  Transmission Date: 20240410
  Serious: Yes (Other)
  Sender: FDA-Public Use
  Company Number: US-ARGENX-2024-ARGX-US001117

PATIENT

DRUGS (1)
  1. VYVGART [Suspect]
     Active Substance: EFGARTIGIMOD ALFA-FCAB
     Indication: Myasthenia gravis
     Dosage: UNK
     Route: 042
     Dates: start: 20230615

REACTIONS (6)
  - Gastric ulcer [Unknown]
  - Gastrointestinal perforation [Unknown]
  - Therapy interrupted [Unknown]
  - Gait inability [Unknown]
  - Confusional state [Unknown]
  - Amnesia [Unknown]

NARRATIVE: CASE EVENT DATE: 20230701
